FAERS Safety Report 12061136 (Version 1)
Quarter: 2016Q1

REPORT INFORMATION
  Report Type: Spontaneous
  Country: US (occurrence: US)
  Receive Date: 20160210
  Receipt Date: 20160210
  Transmission Date: 20160526
  Serious: No
  Sender: FDA-Public Use
  Company Number: US-RISING PHARMACEUTICALS, INC.-2015RIS00066

PATIENT
  Age: 63 Year
  Sex: Female
  Weight: 68.48 kg

DRUGS (3)
  1. CIPROFLOXACIN. [Suspect]
     Active Substance: CIPROFLOXACIN
     Indication: EYE INFECTION
     Dosage: 2 GTT, AS DIRECTED
     Route: 047
     Dates: start: 201504, end: 2015
  2. HRT PATCH (UNSPECIFIED) [Concomitant]
  3. AUGMENTIN [Concomitant]
     Active Substance: AMOXICILLIN\CLAVULANATE POTASSIUM

REACTIONS (2)
  - Instillation site foreign body sensation [Recovered/Resolved]
  - Instillation site pain [Recovered/Resolved]

NARRATIVE: CASE EVENT DATE: 201504
